FAERS Safety Report 19762785 (Version 1)
Quarter: 2021Q3

REPORT INFORMATION
  Report Type: Spontaneous
  Country: GB (occurrence: GB)
  Receive Date: 20210830
  Receipt Date: 20210830
  Transmission Date: 20211014
  Serious: Yes (Other)
  Sender: FDA-Public Use
  Company Number: GB-GLAXOSMITHKLINE-GB2021182458

PATIENT
  Age: 47 Year
  Sex: Male
  Weight: 55.8 kg

DRUGS (1)
  1. FLIXONASE [Suspect]
     Active Substance: FLUTICASONE PROPIONATE
     Indication: PREOPERATIVE CARE
     Dosage: 400 ?G, BID, 1MG/ML
     Route: 045
     Dates: start: 20210813, end: 20210825

REACTIONS (3)
  - Hunger [Recovered/Resolved]
  - Anger [Recovered/Resolved]
  - Confusional state [Recovered/Resolved]

NARRATIVE: CASE EVENT DATE: 20210821
